FAERS Safety Report 8475076-5 (Version None)
Quarter: 2012Q2

REPORT INFORMATION
  Report Type: 
  Country: None (occurrence: None)
  Receive Date: 20120628
  Receipt Date: 20120619
  Transmission Date: 20120825
  Serious: Yes (Other)
  Sender: FDA-Public Use
  Company Number: CA-JNJFOC-20120609387

PATIENT
  Sex: Male
  Weight: 80 kg

DRUGS (5)
  1. DIPENTUM [Concomitant]
     Route: 065
  2. SYNTHROID [Concomitant]
     Route: 065
  3. ASPIRIN [Concomitant]
     Route: 065
  4. REMICADE [Suspect]
     Indication: COLITIS ULCERATIVE
     Route: 042
     Dates: start: 20120523, end: 20120619
  5. PREDNISONE TAB [Concomitant]
     Route: 065

REACTIONS (3)
  - RESPIRATORY DISORDER [None]
  - LETHARGY [None]
  - GENERAL PHYSICAL HEALTH DETERIORATION [None]
